FAERS Safety Report 8429473-4 (Version None)
Quarter: 2012Q2

REPORT INFORMATION
  Report Type: 
  Country: None (occurrence: None)
  Receive Date: 20120612
  Receipt Date: 20120607
  Transmission Date: 20120825
  Serious: Yes (Life-Threatening, Hospitalization, Other)
  Sender: FDA-Public Use
  Company Number: CA-JNJFOC-20120204171

PATIENT
  Sex: Female
  Weight: 99.34 kg

DRUGS (13)
  1. ACETAMINOPHEN [Concomitant]
     Route: 065
  2. AVELOX [Concomitant]
     Route: 065
  3. ZANTAC [Concomitant]
     Route: 065
  4. INVEGA SUSTENNA [Suspect]
     Dosage: ON JAN-24
     Route: 065
  5. ALBUTEROL [Concomitant]
     Route: 055
  6. INVEGA SUSTENNA [Suspect]
     Indication: SCHIZOPHRENIA
     Dosage: ON JAN-17
     Route: 065
  7. DOCUSATE [Concomitant]
     Route: 065
  8. ATROVENT [Concomitant]
     Route: 055
  9. FUROSEMIDE [Concomitant]
     Route: 065
  10. PREDNISONE TAB [Concomitant]
     Route: 065
  11. LEVOTHYROXINE SODIUM [Concomitant]
     Route: 065
  12. BENZTROPINE MESYLATE [Concomitant]
     Route: 065
  13. CLOBETASOL PROPIONATE [Concomitant]
     Route: 065

REACTIONS (5)
  - DYSPNOEA [None]
  - SLEEP APNOEA SYNDROME [None]
  - BLOOD PRESSURE DECREASED [None]
  - SWELLING FACE [None]
  - OEDEMA [None]
